FAERS Safety Report 20466720 (Version 3)
Quarter: 2025Q4

REPORT INFORMATION
  Report Type: Report from Study
  Country: EU (occurrence: EU)
  Receive Date: 20220213
  Receipt Date: 20251029
  Transmission Date: 20260118
  Serious: Yes (Hospitalization, Other)
  Sender: AUROBINDO
  Company Number: EU-GLAXOSMITHKLINE-PL2021EME048277

PATIENT
  Age: 7 Week
  Sex: Female
  Weight: 5.2 kg

DRUGS (6)
  1. ACETAMINOPHEN [Suspect]
     Active Substance: ACETAMINOPHEN
     Indication: Pyrexia
     Dosage: UNK
     Route: 065
     Dates: start: 20201028, end: 20201106
  2. ACETAMINOPHEN [Suspect]
     Active Substance: ACETAMINOPHEN
     Indication: Inflammation
  3. ACETAMINOPHEN [Suspect]
     Active Substance: ACETAMINOPHEN
     Indication: Body temperature increased
  4. INFANRIX HEXA [Suspect]
     Active Substance: DIPHTHERIA AND TETANUS TOXOIDS AND ACELLULAR PERTUSSIS ADSORBED, INACTIVATED POLIOVIRUS AND HAEMOPHI
     Indication: Prophylaxis
     Dosage: UNK
     Route: 030
     Dates: start: 20201021
  5. PNEUMOCOCCAL CONJUGATE VACCINE NOS [Suspect]
     Active Substance: PNEUMOCOCCAL CONJUGATE VACCINE
     Indication: Prophylaxis
     Dosage: UNK
     Route: 030
     Dates: start: 20201021
  6. ROTARIX [Suspect]
     Active Substance: HUMAN ROTAVIRUS A TYPE G1P(8) STRAIN RIX4414 LIVE ANTIGEN
     Indication: Prophylaxis
     Dosage: UNK
     Route: 048
     Dates: start: 20201021

REACTIONS (7)
  - Inflammation [Recovered/Resolved]
  - Pyrexia [Unknown]
  - Choking [Unknown]
  - Inguinal hernia [Unknown]
  - Swelling [Unknown]
  - Groin pain [Unknown]
  - Contusion [Unknown]

NARRATIVE: CASE EVENT DATE: 20201028
